FAERS Safety Report 6537895 (Version 33)
Quarter: 2015Q4

REPORT INFORMATION
  Report Type: Spontaneous
  Country: US (occurrence: US)
  Receive Date: 20080129
  Receipt Date: 20151217
  Transmission Date: 20160305
  Serious: Yes (Hospitalization, Other)
  Sender: FDA-Public Use
  Company Number: US-AMGEN-US261854

PATIENT
  Age: 62 Year
  Sex: Male

DRUGS (4)
  1. PROCRIT [Suspect]
     Active Substance: ERYTHROPOIETIN
     Indication: ANAEMIA
     Dosage: 40000 IU, QWK
     Route: 058
     Dates: start: 200606, end: 200903
  2. RIBAVIRIN. [Concomitant]
     Active Substance: RIBAVIRIN
     Dosage: UNK UNK, UNK
     Dates: end: 200611
  3. INTERFERON [Concomitant]
     Active Substance: INTERFERON
     Dosage: UNK UNK, UNK
     Dates: end: 200611
  4. CYANOCOBALAMIN. [Concomitant]
     Active Substance: CYANOCOBALAMIN
     Dosage: UNK

REACTIONS (4)
  - Anti-erythropoietin antibody positive [Not Recovered/Not Resolved]
  - Aplasia pure red cell [Recovered/Resolved]
  - Neutralising antibodies positive [Not Recovered/Not Resolved]
  - Varices oesophageal [Unknown]

NARRATIVE: CASE EVENT DATE: 200611
